FAERS Safety Report 9808200 (Version 1)
Quarter: 2014Q1

REPORT INFORMATION
  Report Type: Spontaneous
  Country: US (occurrence: US)
  Receive Date: 20140110
  Receipt Date: 20140110
  Transmission Date: 20141002
  Serious: No
  Sender: FDA-Public Use
  Company Number: US-009507513-1312USA010457

PATIENT
  Sex: Female

DRUGS (2)
  1. MIRALAX [Suspect]
     Indication: PRODUCT USED FOR UNKNOWN INDICATION
     Dosage: 17 G, QPM
     Route: 048
     Dates: start: 20131209
  2. MIRALAX [Suspect]
     Dosage: 17 G, QAM
     Route: 048
     Dates: start: 20131210

REACTIONS (1)
  - Inappropriate schedule of drug administration [Unknown]
